FAERS Safety Report 9285944 (Version 1)
Quarter: 2013Q2

REPORT INFORMATION
  Report Type: Spontaneous
  Country: NL (occurrence: NL)
  Receive Date: 20130513
  Receipt Date: 20130513
  Transmission Date: 20140414
  Serious: Yes (Death)
  Sender: FDA-Public Use
  Company Number: NL-ASTRAZENECA-2013SE31932

PATIENT
  Age: 41 Year
  Sex: Male
  Weight: 67 kg

DRUGS (8)
  1. SYMBICORT TURBUHALER [Suspect]
     Indication: CHRONIC OBSTRUCTIVE PULMONARY DISEASE
     Dosage: 100/6 MCG, 1 DF, TWO TIMES A DAY
     Route: 055
     Dates: start: 2012
  2. SYMBICORT TURBUHALER [Suspect]
     Indication: ASTHMA
     Dosage: 100/6 MCG, 1 DF, TWO TIMES A DAY
     Route: 055
     Dates: start: 2012
  3. DISULFIRAM [Suspect]
     Indication: ALCOHOL ABUSE
     Route: 048
  4. DISULFIRAM [Suspect]
     Indication: ALCOHOL ABUSE
     Route: 048
     Dates: start: 20130403
  5. CAMPRAL [Concomitant]
     Route: 048
  6. THIAMINE [Concomitant]
     Route: 048
  7. THIAMINE [Concomitant]
     Route: 058
  8. THIAMINE [Concomitant]
     Route: 030

REACTIONS (3)
  - Chest pain [Fatal]
  - Myocardial infarction [Fatal]
  - Arrhythmia [Fatal]
